FAERS Safety Report 12283936 (Version 1)
Quarter: 2016Q2

REPORT INFORMATION
  Report Type: Spontaneous
  Country: US (occurrence: US)
  Receive Date: 20160419
  Receipt Date: 20160419
  Transmission Date: 20160815
  Serious: No
  Sender: FDA-Public Use
  Company Number: US-BANPHARM-20164609

PATIENT
  Age: 84 Year
  Sex: Male
  Weight: 78.47 kg

DRUGS (5)
  1. ALEVE [Suspect]
     Active Substance: NAPROXEN SODIUM
     Indication: ARTHRITIS
     Dosage: 2 DF, ONE TIME USE,
     Route: 048
     Dates: start: 20160117, end: 20160117
  2. NAPROXEN UNKNOWN PRODUCT [Concomitant]
     Active Substance: NAPROXEN
  3. CIRCULATION PILL [Concomitant]
  4. TRANQUILIZER [Concomitant]
     Active Substance: UNSPECIFIED INGREDIENT
  5. LOWPRESSURE [Concomitant]

REACTIONS (1)
  - Drug ineffective [Unknown]

NARRATIVE: CASE EVENT DATE: 20160117
